FAERS Safety Report 15685117 (Version 1)
Quarter: 2018Q4

REPORT INFORMATION
  Report Type: Spontaneous
  Country: US (occurrence: US)
  Receive Date: 20181204
  Receipt Date: 20181204
  Transmission Date: 20190205
  Serious: No
  Sender: FDA-Public Use
  Company Number: US-009507513-1811USA006007

PATIENT
  Age: 21 Year
  Sex: Female
  Weight: 63 kg

DRUGS (2)
  1. NEXPLANON [Suspect]
     Active Substance: ETONOGESTREL
     Dosage: 1 DOSAGE FORM, 1 IMPLANT
     Route: 059
     Dates: start: 20181102, end: 20181102
  2. NEXPLANON [Suspect]
     Active Substance: ETONOGESTREL
     Dosage: 1 DOSAGE FORM, 1 IMPLANT
     Route: 059
     Dates: start: 20181102

REACTIONS (3)
  - Complication of device insertion [Recovered/Resolved]
  - No adverse event [Unknown]
  - Device difficult to use [Recovered/Resolved]

NARRATIVE: CASE EVENT DATE: 20181102
